FAERS Safety Report 6048106-8 (Version None)
Quarter: 2009Q1

REPORT INFORMATION
  Report Type: 
  Country: None (occurrence: None)
  Receive Date: 20090123
  Receipt Date: 20090115
  Transmission Date: 20090719
  Serious: Yes (Other)
  Sender: FDA-Public Use
  Company Number: PHBS2008US01528

PATIENT
  Age: 37 Year
  Sex: Female

DRUGS (8)
  1. CYCLOSPORINE [Suspect]
     Indication: HEART TRANSPLANT
  2. MYCOPHENOLIC ACID [Suspect]
     Indication: HEART TRANSPLANT
  3. VALGANCICLOVIR HCL [Concomitant]
     Dosage: 900 MG/DAY
  4. VALGANCICLOVIR HCL [Concomitant]
     Dosage: 900 MG, BID
  5. VALGANCICLOVIR HCL [Concomitant]
     Dosage: 900 MG, QD
  6. ACYCLOVIR [Concomitant]
     Route: 048
  7. TACROLIMUS [Concomitant]
     Indication: HEART TRANSPLANT
  8. PREDNISONE [Concomitant]
     Indication: HEART TRANSPLANT

REACTIONS (6)
  - ALOPECIA [None]
  - DYSPLASIA [None]
  - HAIR DISORDER [None]
  - HYPERKERATOSIS [None]
  - MADAROSIS [None]
  - RASH PAPULAR [None]
